FAERS Safety Report 15917191 (Version 1)
Quarter: 2019Q1

REPORT INFORMATION
  Report Type: Spontaneous
  Country: SI (occurrence: SI)
  Receive Date: 20190205
  Receipt Date: 20190205
  Transmission Date: 20190417
  Serious: Yes (Other)
  Sender: FDA-Public Use
  Company Number: SI-ACCORD-105498

PATIENT
  Age: 69 Year
  Sex: Female

DRUGS (7)
  1. RANITIDINE. [Concomitant]
     Active Substance: RANITIDINE
  2. MEDROL [Concomitant]
     Active Substance: METHYLPREDNISOLONE
     Dosage: ACCORDING TO THE SCHEME
  3. NEXIUM [Concomitant]
     Active Substance: ESOMEPRAZOLE MAGNESIUM
  4. REGLAN [Concomitant]
     Active Substance: METOCLOPRAMIDE HYDROCHLORIDE
  5. CISPLATIN ACCORD [Suspect]
     Active Substance: CISPLATIN
     Indication: OVARIAN CANCER RECURRENT
     Dosage: 1 MG/ML INFUSION AMPOULES, VIALS/BOTTLES
     Route: 042
  6. HELEX [Concomitant]
     Active Substance: ALPRAZOLAM
  7. NALGESIN [Concomitant]

REACTIONS (1)
  - Infusion related reaction [Recovered/Resolved]

NARRATIVE: CASE EVENT DATE: 20180418
